FAERS Safety Report 9795935 (Version 2)
Quarter: 2014Q1

REPORT INFORMATION
  Report Type: Spontaneous
  Country: US (occurrence: US)
  Receive Date: 20140103
  Receipt Date: 20140123
  Transmission Date: 20141002
  Serious: No
  Sender: FDA-Public Use
  Company Number: US-PFIZER INC-2014000345

PATIENT
  Age: 84 Year
  Sex: Female
  Weight: 63.49 kg

DRUGS (2)
  1. LATANOPROST [Suspect]
     Indication: GLAUCOMA
     Dosage: 1 GTT, DAILY (1 DROP IN EACH EYE DAILY)
     Route: 047
     Dates: start: 2013, end: 201312
  2. LATANOPROST [Suspect]
     Dosage: UNK

REACTIONS (3)
  - Eye irritation [Recovered/Resolved]
  - Product quality issue [Recovered/Resolved]
  - Hypersensitivity [Unknown]
